FAERS Safety Report 12850107 (Version 1)
Quarter: 2016Q4

REPORT INFORMATION
  Report Type: Spontaneous
  Country: US (occurrence: US)
  Receive Date: 20161014
  Receipt Date: 20161014
  Transmission Date: 20170207
  Serious: No
  Sender: FDA-Public Use
  Company Number: US-ROCHE-1797836

PATIENT
  Sex: Male

DRUGS (2)
  1. OFEV [Concomitant]
     Active Substance: NINTEDANIB
     Indication: IDIOPATHIC PULMONARY FIBROSIS
     Dosage: 2 PILLS BID
     Route: 048
     Dates: start: 20160328
  2. ESBRIET [Suspect]
     Active Substance: PIRFENIDONE
     Indication: IDIOPATHIC PULMONARY FIBROSIS
     Dosage: 3 PILLS TID
     Route: 048
     Dates: start: 2014

REACTIONS (5)
  - Decreased appetite [Unknown]
  - Abdominal discomfort [Unknown]
  - Insomnia [Unknown]
  - Diarrhoea [Unknown]
  - Asthenia [Unknown]
